FAERS Safety Report 25901232 (Version 4)
Quarter: 2025Q4

REPORT INFORMATION
  Report Type: Report from Study
  Country: CA (occurrence: CA)
  Receive Date: 20251009
  Receipt Date: 20251212
  Transmission Date: 20260117
  Serious: Yes (Hospitalization, Other)
  Sender: PFIZER
  Company Number: CA-PFIZER INC-202500173760

PATIENT
  Age: 65 Year
  Sex: Female
  Weight: 111 kg

DRUGS (3)
  1. IXIFI [Suspect]
     Active Substance: INFLIXIMAB-QBTX
     Indication: Colitis ulcerative
     Dosage: EVERY 8 WEEKS
     Route: 042
     Dates: start: 20250619
  2. IXIFI [Suspect]
     Active Substance: INFLIXIMAB-QBTX
     Dosage: EVERY 8 WEEKS
     Route: 042
     Dates: start: 20250811
  3. IXIFI [Suspect]
     Active Substance: INFLIXIMAB-QBTX
     Dosage: 10 WEEKS AFTER
     Route: 042
     Dates: start: 20251020, end: 2025

REACTIONS (2)
  - Haemoglobin decreased [Unknown]
  - Postoperative wound complication [Not Recovered/Not Resolved]

NARRATIVE: CASE EVENT DATE: 20250101
